FAERS Safety Report 16962116 (Version 1)
Quarter: 2019Q4

REPORT INFORMATION
  Report Type: Spontaneous
  Country: US (occurrence: US)
  Receive Date: 20191024
  Receipt Date: 20191024
  Transmission Date: 20200122
  Serious: Yes (Hospitalization)
  Sender: FDA-Public Use
  Company Number: None

PATIENT
  Age: 42 Year
  Sex: Male
  Weight: 78.75 kg

DRUGS (1)
  1. BASIC CARE ACID REDUCER [Suspect]
     Active Substance: RANITIDINE HYDROCHLORIDE
     Indication: FLATULENCE
     Dates: start: 20190401, end: 20191002

REACTIONS (3)
  - Haematochezia [None]
  - Anaemia [None]
  - Haematemesis [None]

NARRATIVE: CASE EVENT DATE: 20190504
